FAERS Safety Report 6675146-8 (Version None)
Quarter: 2010Q2

REPORT INFORMATION
  Report Type: 
  Country: None (occurrence: None)
  Receive Date: 20100409
  Receipt Date: 20100331
  Transmission Date: 20101027
  Serious: Yes (Hospitalization)
  Sender: FDA-Public Use
  Company Number: FR-PFIZER INC-2010041738

PATIENT
  Age: 80 Year
  Sex: Female

DRUGS (8)
  1. TAHOR [Suspect]
     Dosage: 40 MG, 1X/DAY
     Route: 048
     Dates: end: 20100224
  2. DEROXAT [Suspect]
     Dosage: 30 MG, 1X/DAY
     Route: 048
     Dates: end: 20100224
  3. LOXAPAC [Suspect]
     Indication: DEMENTIA
     Dosage: 20 GTT, 1X/DAY
     Route: 048
     Dates: start: 20100219, end: 20100224
  4. IXPRIM [Suspect]
     Dosage: 4 DF, 1X/DAY
     Route: 048
     Dates: end: 20100226
  5. OMEPRAZOLE [Concomitant]
  6. KARDEGIC [Concomitant]
  7. LEVOTHYROX [Concomitant]
  8. COVERSYL [Concomitant]

REACTIONS (1)
  - CYTOLYTIC HEPATITIS [None]
